FAERS Safety Report 9052349 (Version 1)
Quarter: 2013Q1

REPORT INFORMATION
  Report Type: Report from Study
  Country: US (occurrence: US)
  Receive Date: 20130206
  Receipt Date: 20130206
  Transmission Date: 20140127
  Serious: No
  Sender: FDA-Public Use
  Company Number: US-VERTEX PHARMACEUTICALS INC.-2013-001573

PATIENT
  Sex: Female
  Weight: 74.83 kg

DRUGS (6)
  1. VX-950 (TELAPREVIR) [Suspect]
     Indication: HEPATITIS C
     Dosage: 750 MG, TID
     Route: 048
  2. VITAMIN B COMPLEX [Concomitant]
     Route: 048
  3. FISH OIL [Concomitant]
     Route: 048
  4. VITAMIN D [Concomitant]
     Dosage: 1000 DF, UNK
     Route: 048
  5. MULTIVITAMIN [Concomitant]
     Route: 048
  6. BENICAR HCT [Concomitant]
     Route: 048

REACTIONS (1)
  - Rash [Unknown]
